FAERS Safety Report 18521069 (Version 1)
Quarter: 2020Q4

REPORT INFORMATION
  Report Type: Spontaneous
  Country: GB (occurrence: GB)
  Receive Date: 20201119
  Receipt Date: 20201119
  Transmission Date: 20210114
  Serious: Yes (Other)
  Sender: FDA-Public Use
  Company Number: GB-GLAXOSMITHKLINE-GB2020EME225457

PATIENT
  Sex: Female

DRUGS (1)
  1. NIRAPARIB [Suspect]
     Active Substance: NIRAPARIB
     Indication: OVARIAN CANCER
     Dosage: 300 MG
     Dates: start: 201711

REACTIONS (5)
  - Ovarian cancer recurrent [Unknown]
  - Metastases to chest wall [Unknown]
  - Ovarian cancer metastatic [Unknown]
  - Musculoskeletal chest pain [Unknown]
  - Malignant neoplasm progression [Unknown]
